FAERS Safety Report 25364786 (Version 1)
Quarter: 2025Q2

REPORT INFORMATION
  Report Type: Report from Study
  Country: FR (occurrence: FR)
  Receive Date: 20250527
  Receipt Date: 20250527
  Transmission Date: 20250717
  Serious: Yes (Other)
  Sender: VERTEX
  Company Number: FR-VERTEX PHARMACEUTICALS-2024-009547

PATIENT
  Age: 2 Year
  Sex: Male
  Weight: 14 kg

DRUGS (7)
  1. ELEXACAFTOR\IVACAFTOR\TEZACAFTOR [Suspect]
     Active Substance: ELEXACAFTOR\IVACAFTOR\TEZACAFTOR
     Indication: Cystic fibrosis
     Dosage: 1 SACHET GRANULES/DAY; (60MG/ 40MG/ 80MG) IN AM
     Route: 048
     Dates: start: 20240424
  2. ELEXACAFTOR\IVACAFTOR\TEZACAFTOR [Suspect]
     Active Substance: ELEXACAFTOR\IVACAFTOR\TEZACAFTOR
     Route: 048
  3. KALYDECO [Suspect]
     Active Substance: IVACAFTOR
     Indication: Cystic fibrosis
     Dosage: 1 SACHET GRANULES/DAY; (59.5 MG) IN PM
     Route: 048
     Dates: start: 20240424, end: 20240529
  4. ZITHROMAX [Concomitant]
     Active Substance: AZITHROMYCIN DIHYDRATE
     Dosage: 3 DOSAGE FORM, QW
     Route: 048
     Dates: start: 202401
  5. CREON [Concomitant]
     Active Substance: PANCRELIPASE AMYLASE\PANCRELIPASE LIPASE\PANCRELIPASE PROTEASE
     Dosage: 140000 INTERNATIONAL UNIT, QD
     Route: 048
  6. Uvesterol vitamine a d e c [Concomitant]
     Dosage: UNK, QD
  7. VITAMIN K1 [Concomitant]
     Active Substance: PHYTONADIONE
     Dosage: 2 MILLILITER, QW
     Route: 048

REACTIONS (5)
  - Middle insomnia [Not Recovered/Not Resolved]
  - Agitation [Not Recovered/Not Resolved]
  - Aggression [Not Recovered/Not Resolved]
  - Disturbance in attention [Not Recovered/Not Resolved]
  - Restlessness [Not Recovered/Not Resolved]

NARRATIVE: CASE EVENT DATE: 20240426
